FAERS Safety Report 7722334-5 (Version None)
Quarter: 2011Q3

REPORT INFORMATION
  Report Type: 
  Country: None (occurrence: None)
  Receive Date: 20110831
  Receipt Date: 20110826
  Transmission Date: 20111222
  Serious: Yes (Other)
  Sender: FDA-Public Use
  Company Number: US-ABBOTT-11P-163-0849766-00

PATIENT
  Age: 63 Year
  Sex: Male
  Weight: 75.818 kg

DRUGS (7)
  1. DEPAKOTE [Interacting]
     Dates: start: 20110101
  2. PHENYTOIN SODIUM [Interacting]
     Dosage: 200 IN THE MORNING, 100 MG IN 200MG: AM, 100MG: AFTERNOON, 200MG:PM
     Dates: end: 20110101
  3. PHENYTOIN SODIUM [Interacting]
     Indication: GRAND MAL CONVULSION
     Route: 048
     Dates: start: 19890901
  4. PHENYTOIN SODIUM [Interacting]
     Dates: start: 20110101
  5. DEPAKOTE [Interacting]
     Dosage: ALTERNATE DAY
     Route: 048
     Dates: start: 20050101, end: 20110101
  6. DEPAKOTE [Suspect]
     Indication: GRAND MAL CONVULSION
     Dosage: 2 TABLETS ON ONE DAY
     Route: 048
     Dates: start: 20050101
  7. PHENYTOIN [Interacting]
     Indication: PRODUCT USED FOR UNKNOWN INDICATION

REACTIONS (7)
  - DRUG INTERACTION [None]
  - INCOHERENT [None]
  - DIZZINESS [None]
  - ANTICONVULSANT DRUG LEVEL INCREASED [None]
  - CONVULSION [None]
  - BLOOD GLUCOSE DECREASED [None]
  - APHASIA [None]
